FAERS Safety Report 6634982-4 (Version None)
Quarter: 2010Q1

REPORT INFORMATION
  Report Type: 
  Country: None (occurrence: None)
  Receive Date: 20100315
  Receipt Date: 20100304
  Transmission Date: 20100710
  Serious: Yes (Hospitalization)
  Sender: FDA-Public Use
  Company Number: US-BAXTER-2010BH006271

PATIENT
  Age: 22 Year
  Sex: Female

DRUGS (1)
  1. DIANEAL [Suspect]
     Indication: PERITONEAL DIALYSIS
     Route: 033
     Dates: start: 20060801

REACTIONS (5)
  - ABDOMINAL PAIN [None]
  - CHEST PAIN [None]
  - DIARRHOEA [None]
  - NAUSEA [None]
  - PULMONARY OEDEMA [None]
